FAERS Safety Report 16028024 (Version 1)
Quarter: 2019Q1

REPORT INFORMATION
  Report Type: Spontaneous
  Country: US (occurrence: US)
  Receive Date: 20190304
  Receipt Date: 20190304
  Transmission Date: 20190418
  Serious: No
  Sender: FDA-Public Use
  Company Number: US-TEVA-2019-US-1009802

PATIENT

DRUGS (1)
  1. DEXTROAMPHETAMINE SULFATE ACTAVIS [Suspect]
     Active Substance: DEXTROAMPHETAMINE SULFATE
     Route: 065

REACTIONS (7)
  - Dizziness [Unknown]
  - Myalgia [Unknown]
  - Nausea [Unknown]
  - Diarrhoea [Unknown]
  - Vomiting [Unknown]
  - Feeling abnormal [Unknown]
  - Drug ineffective [Unknown]
